FAERS Safety Report 15004383 (Version 6)
Quarter: 2018Q4

REPORT INFORMATION
  Report Type: Spontaneous
  Country: US (occurrence: US)
  Receive Date: 20180613
  Receipt Date: 20181206
  Transmission Date: 20190204
  Serious: No
  Sender: FDA-Public Use
  Company Number: US-PFIZER INC-2018240044

PATIENT
  Age: 5 Year
  Sex: Male
  Weight: 15.42 kg

DRUGS (2)
  1. GENOTROPIN [Suspect]
     Active Substance: SOMATROPIN
     Indication: LOW BIRTH WEIGHT BABY
     Dosage: 0.7 MG, DAILY
     Route: 058
     Dates: start: 20170620, end: 20181122
  2. GENOTROPIN [Suspect]
     Active Substance: SOMATROPIN
     Indication: BODY HEIGHT BELOW NORMAL
     Dosage: 0.8 MG, DAILY

REACTIONS (6)
  - Device leakage [Unknown]
  - Limb mass [Unknown]
  - Product dose omission [Not Recovered/Not Resolved]
  - Device breakage [Unknown]
  - Device defective [Unknown]
  - Incorrect dose administered [Unknown]

NARRATIVE: CASE EVENT DATE: 20180716
